FAERS Safety Report 19815135 (Version 3)
Quarter: 2021Q4

REPORT INFORMATION
  Report Type: Spontaneous
  Country: DE (occurrence: DE)
  Receive Date: 20210910
  Receipt Date: 20211006
  Transmission Date: 20220303
  Serious: Yes (Other)
  Sender: FDA-Public Use
  Company Number: DE-MYLANLABS-2021M1060713

PATIENT
  Age: 62 Year
  Sex: Female
  Weight: 105 kg

DRUGS (7)
  1. METHOTREXATE SODIUM [Suspect]
     Active Substance: METHOTREXATE SODIUM
     Indication: Product used for unknown indication
     Dosage: 15 MILLIGRAM (STARTED 8 WEEKS AGO)
     Dates: end: 20210831
  2. PREDNISOLONE [Concomitant]
     Active Substance: PREDNISOLONE
     Indication: Sjogren^s syndrome
     Dosage: 40 MILLIGRAM, QD (1-0-0 (CURRENTLY 5MG)
     Route: 048
     Dates: start: 20210701
  3. BISOPROLOL [Concomitant]
     Active Substance: BISOPROLOL
     Indication: Product used for unknown indication
     Dosage: 20 MILLIGRAM, QD (1-0-0)
     Dates: start: 20210701
  4. PANTOPRAZOLE [Concomitant]
     Active Substance: PANTOPRAZOLE
     Indication: Product used for unknown indication
     Dosage: 40 MILLIGRAM (1-0-1 (CURRENTLY 1-0-0))
     Dates: start: 20210701
  5. TELMISARTAN [Concomitant]
     Active Substance: TELMISARTAN
     Indication: Product used for unknown indication
     Dosage: UNK UNK, QD
     Route: 048
  6. ALPRAZOLAM [Concomitant]
     Active Substance: ALPRAZOLAM
     Indication: Product used for unknown indication
     Dosage: UNK UNK, QD (DAILY)
     Route: 048
  7. LEVOTHYROXINE [Concomitant]
     Active Substance: LEVOTHYROXINE
     Indication: Product used for unknown indication
     Dosage: UNK UNK, QD (DAILY)
     Route: 048

REACTIONS (21)
  - Intestinal haemorrhage [Recovered/Resolved]
  - Epistaxis [Recovered/Resolved]
  - Noninfective gingivitis [Recovered/Resolved]
  - Pharyngeal swelling [Recovered/Resolved]
  - Mucosal hypertrophy [Recovered/Resolved]
  - Pulmonary pain [Not Recovered/Not Resolved]
  - Sensitisation [Recovered/Resolved]
  - Discharge [Recovered/Resolved]
  - Pain [Recovered/Resolved]
  - Sciatica [Not Recovered/Not Resolved]
  - Gait disturbance [Recovered/Resolved]
  - Restlessness [Recovering/Resolving]
  - Tremor [Recovering/Resolving]
  - Sleep disorder [Recovering/Resolving]
  - Nasal crusting [Recovered/Resolved]
  - Hypokinesia [Unknown]
  - Dyspnoea [Not Recovered/Not Resolved]
  - Erythema [Unknown]
  - Back pain [Not Recovered/Not Resolved]
  - Myalgia [Not Recovered/Not Resolved]
  - Injection site vesicles [Recovered/Resolved]

NARRATIVE: CASE EVENT DATE: 20210701
